FAERS Safety Report 8313001-8 (Version None)
Quarter: 2012Q2

REPORT INFORMATION
  Report Type: 
  Country: None (occurrence: None)
  Receive Date: 20120424
  Receipt Date: 20120413
  Transmission Date: 20120825
  Serious: Yes (Other)
  Sender: FDA-Public Use
  Company Number: 2012MA005113

PATIENT
  Age: 52 Year
  Sex: Female

DRUGS (2)
  1. ZOMETA [Suspect]
     Indication: METASTASES TO BONE
     Dosage: ;IV
     Route: 042
     Dates: start: 20070601
  2. LETROZOLE TABLETS USP 2.5MG (ATLLC) (LETROZOLE) [Suspect]
     Indication: METASTASES TO BONE
     Dosage: 2.5 MG;	;PO
     Route: 048
     Dates: start: 20070501

REACTIONS (7)
  - OSTEONECROSIS OF JAW [None]
  - CARDIAC SARCOIDOSIS [None]
  - BREAST CANCER METASTATIC [None]
  - POST PROCEDURAL COMPLICATION [None]
  - OSTEONECROSIS [None]
  - BACK PAIN [None]
  - NEOPLASM PROGRESSION [None]
